FAERS Safety Report 24999426 (Version 1)
Quarter: 2025Q1

REPORT INFORMATION
  Report Type: Spontaneous
  Country: US (occurrence: US)
  Receive Date: 20250222
  Receipt Date: 20250222
  Transmission Date: 20250409
  Serious: No
  Sender: SANOFI AVENTIS
  Company Number: US-SA-2025SA045739

PATIENT
  Sex: Female
  Weight: 69.85 kg

DRUGS (2)
  1. DUPIXENT [Suspect]
     Active Substance: DUPILUMAB
     Indication: Dermatitis atopic
     Dosage: 300MG QOW
  2. DUPIXENT [Suspect]
     Active Substance: DUPILUMAB
     Dosage: 200MGEVERY2WEEKS

REACTIONS (3)
  - Erythema [Unknown]
  - Swelling of eyelid [Unknown]
  - Off label use [Unknown]
